FAERS Safety Report 8492031-X (Version None)
Quarter: 2012Q3

REPORT INFORMATION
  Report Type: 
  Country: None (occurrence: None)
  Receive Date: 20120706
  Receipt Date: 20120627
  Transmission Date: 20120928
  Serious: Yes (Other)
  Sender: FDA-Public Use
  Company Number: US-US-EMD SERONO, INC.-7144250

PATIENT
  Sex: Female

DRUGS (4)
  1. REBIF [Suspect]
     Indication: MULTIPLE SCLEROSIS
     Route: 058
     Dates: start: 20100525
  2. TOVIAZ [Concomitant]
     Indication: BLADDER DISORDER
  3. UNSPECIFIED MEDICATION FOR BLADDER [Concomitant]
     Indication: BLADDER DISORDER
  4. ESTER C [Concomitant]
     Indication: IMMUNE ENHANCEMENT THERAPY

REACTIONS (4)
  - WEIGHT DECREASED [None]
  - DIABETES MELLITUS [None]
  - OCULAR ICTERUS [None]
  - VITAMIN D DEFICIENCY [None]
